FAERS Safety Report 9233319 (Version 1)
Quarter: 2013Q2

REPORT INFORMATION
  Report Type: Spontaneous
  Country: CA (occurrence: CA)
  Receive Date: 20130416
  Receipt Date: 20130416
  Transmission Date: 20140414
  Serious: Yes (Hospitalization)
  Sender: FDA-Public Use
  Company Number: CA-ELI_LILLY_AND_COMPANY-CA201304002268

PATIENT
  Age: 94 Year
  Sex: Female

DRUGS (9)
  1. FORTEO [Suspect]
     Indication: OSTEOPOROSIS
     Dosage: 20 UG, QD
     Route: 058
     Dates: start: 20120820, end: 20121117
  2. FORTEO [Suspect]
     Dosage: 20 UG, QD
     Route: 058
     Dates: start: 20130129, end: 201303
  3. ROCALTROL [Concomitant]
     Dosage: UNK, UNKNOWN
     Route: 065
  4. CARBOCAL [Concomitant]
     Dosage: UNK, UNKNOWN
     Route: 065
  5. SEREVENT [Concomitant]
     Dosage: UNK, UNKNOWN
     Route: 065
  6. FLOVENT [Concomitant]
     Dosage: UNK, UNKNOWN
     Route: 065
  7. SPIRIVA [Concomitant]
     Dosage: UNK, UNKNOWN
     Route: 065
  8. SYNTHROID [Concomitant]
     Dosage: UNK, UNKNOWN
     Route: 065
  9. NASONEX [Concomitant]
     Dosage: UNK, UNKNOWN
     Route: 065

REACTIONS (1)
  - Pneumothorax [Recovered/Resolved]
